FAERS Safety Report 8111758-2 (Version None)
Quarter: 2012Q1

REPORT INFORMATION
  Report Type: 
  Country: None (occurrence: None)
  Receive Date: 20120203
  Receipt Date: 20120131
  Transmission Date: 20120608
  Serious: Yes (Death)
  Sender: FDA-Public Use
  Company Number: US-JNJFOC-20111207751

PATIENT
  Sex: Female

DRUGS (4)
  1. DOXORUBICIN HCL [Suspect]
     Indication: UTERINE CANCER
     Route: 042
     Dates: start: 20110711, end: 20110711
  2. TOPOTECAN [Suspect]
     Indication: UTERINE CANCER
     Route: 065
     Dates: start: 20111021
  3. DOXORUBICIN HCL [Suspect]
     Route: 042
     Dates: start: 20110823, end: 20110823
  4. DOXORUBICIN HCL [Suspect]
     Route: 042
     Dates: start: 20110913, end: 20110913

REACTIONS (2)
  - OFF LABEL USE [None]
  - UTERINE CANCER [None]
